FAERS Safety Report 9391900 (Version 1)
Quarter: 2013Q3

REPORT INFORMATION
  Report Type: Spontaneous
  Country: FR (occurrence: FR)
  Receive Date: 20130709
  Receipt Date: 20130709
  Transmission Date: 20140515
  Serious: Yes (Life-Threatening)
  Sender: FDA-Public Use
  Company Number: FR-BAXTER-2013BAX025562

PATIENT
  Sex: Male
  Weight: 7.5 kg

DRUGS (12)
  1. SEVOFLURANE BAXTER 1 ML/ML, LIQUIDE POUR INHALATION PAR VAPEUR [Suspect]
     Indication: GENERAL ANAESTHESIA
     Route: 055
     Dates: start: 20110615
  2. CEFAMANDOLE PANPHARMA [Suspect]
     Indication: ANTIBIOTIC PROPHYLAXIS
     Route: 042
     Dates: start: 20110615
  3. SUFENTA [Suspect]
     Indication: GENERAL ANAESTHESIA
     Dosage: 2 GAMMA
     Route: 042
     Dates: start: 20110615
  4. PROPOFOL FRESENIUS [Suspect]
     Indication: GENERAL ANAESTHESIA
     Route: 042
     Dates: start: 20110615
  5. ATROPINE LAVOISIER [Suspect]
     Indication: GENERAL ANAESTHESIA
     Route: 042
     Dates: start: 20110615
  6. NALBUPHINE MYLAN [Suspect]
     Indication: PAIN
     Route: 042
     Dates: start: 20110615, end: 20110620
  7. VENTOLINE [Suspect]
     Indication: PRODUCT USED FOR UNKNOWN INDICATION
     Dosage: 2 PUFFS
     Route: 065
     Dates: start: 20110615
  8. ZOPHREN [Suspect]
     Indication: NAUSEA
     Route: 042
     Dates: start: 20110616, end: 20110618
  9. MORPHINE [Suspect]
     Indication: PRODUCT USED FOR UNKNOWN INDICATION
     Route: 065
     Dates: start: 20110616
  10. PARACETAMOL [Concomitant]
     Indication: PAIN
     Route: 065
  11. UVESTEROL [Concomitant]
     Indication: PAIN
     Route: 065
  12. ANDROTARDYL [Concomitant]
     Indication: GENITALIA EXTERNAL AMBIGUOUS

REACTIONS (10)
  - Nephropathy toxic [Recovered/Resolved]
  - Malaise [None]
  - Bradycardia [None]
  - Clonus [None]
  - Hyponatraemia [None]
  - Hyperkalaemia [None]
  - Renal failure acute [None]
  - Denys-Drash syndrome [None]
  - Renal tubular disorder [None]
  - Renal impairment [None]
